FAERS Safety Report 7904836-1 (Version None)
Quarter: 2011Q4

REPORT INFORMATION
  Report Type: 
  Country: None (occurrence: None)
  Receive Date: 20111109
  Receipt Date: 20111028
  Transmission Date: 20120403
  Serious: Yes (Other)
  Sender: FDA-Public Use
  Company Number: PHHY2011CA96122

PATIENT
  Sex: Female

DRUGS (1)
  1. ZOMETA [Suspect]
     Indication: BREAST CANCER
     Dosage: 4 MG, EVERY 4 MONTHS
     Route: 042
     Dates: start: 20091021

REACTIONS (6)
  - VIRAL INFECTION [None]
  - HYPOTHYROIDISM [None]
  - NECK PAIN [None]
  - OROPHARYNGEAL PAIN [None]
  - THYROIDITIS SUBACUTE [None]
  - GOITRE [None]
